FAERS Safety Report 5389684-1 (Version None)
Quarter: 2007Q3

REPORT INFORMATION
  Report Type: 
  Country: None (occurrence: None)
  Receive Date: 20070717
  Receipt Date: 20070709
  Transmission Date: 20080115
  Serious: Yes (Death, Hospitalization)
  Sender: FDA-Public Use
  Company Number: PL-ELI_LILLY_AND_COMPANY-PL200707002149

PATIENT
  Age: 58 Year
  Sex: Male
  Weight: 79 kg

DRUGS (5)
  1. PEMETREXED [Suspect]
     Indication: SMALL CELL LUNG CANCER EXTENSIVE STAGE
     Dosage: 500 MG/M2, DAY 1 OF 21 DAY CYCLE
     Route: 042
     Dates: start: 20070423
  2. CARBOPLATIN [Suspect]
     Indication: SMALL CELL LUNG CANCER EXTENSIVE STAGE
     Dosage: 5 AUC, DAY 1 OF 21 DAY CYCLE
     Route: 065
     Dates: start: 20070423
  3. FOLIC ACID [Concomitant]
     Indication: SUPPLEMENTATION THERAPY
     Dosage: 400 UG, DAILY (1/D)
     Route: 048
     Dates: start: 20070419, end: 20070707
  4. VITAMIN B-12 [Concomitant]
     Indication: SUPPLEMENTATION THERAPY
     Dosage: 1000 UG, EVERY 12 WEEKS
     Route: 030
     Dates: start: 20070420, end: 20070625
  5. DEXAMETHASONE 0.5MG TAB [Concomitant]
     Indication: SUPPLEMENTATION THERAPY
     Dosage: 3 MG, 2/D
     Route: 048
     Dates: start: 20070420, end: 20070707

REACTIONS (2)
  - CEREBRAL HAEMORRHAGE [None]
  - THROMBOCYTOPENIA [None]
